FAERS Safety Report 8943896 (Version 5)
Quarter: 2013Q1

REPORT INFORMATION
  Report Type: Spontaneous
  Country: US (occurrence: US)
  Receive Date: 20121204
  Receipt Date: 20130107
  Transmission Date: 20140127
  Serious: No
  Sender: FDA-Public Use
  Company Number: US-ASTRAZENECA-2012SE81190

PATIENT
  Age: 58 Year
  Sex: Male
  Weight: 93.9 kg

DRUGS (7)
  1. SYMBICORT PMDI [Suspect]
     Indication: ASTHMA
     Dosage: 160/4.5MCG,DAILY
     Route: 055
     Dates: end: 20120930
  2. SYMBICORT PMDI [Suspect]
     Indication: CHRONIC OBSTRUCTIVE PULMONARY DISEASE
     Dosage: 160/4.5MCG,DAILY
     Route: 055
     Dates: end: 20120930
  3. SYMBICORT PMDI [Suspect]
     Indication: ASTHMA
     Route: 055
  4. SYMBICORT PMDI [Suspect]
     Indication: CHRONIC OBSTRUCTIVE PULMONARY DISEASE
     Route: 055
  5. SYMBICORT PMDI [Suspect]
     Indication: ASTHMA
     Dosage: TWO PUFFS, TWO TIMES DAILY.
     Route: 055
     Dates: start: 201112, end: 201210
  6. SYMBICORT PMDI [Suspect]
     Indication: CHRONIC OBSTRUCTIVE PULMONARY DISEASE
     Dosage: TWO PUFFS, TWO TIMES DAILY.
     Route: 055
     Dates: start: 201112, end: 201210
  7. VINTOLIN HFA [Concomitant]

REACTIONS (8)
  - Activities of daily living impaired [Unknown]
  - Adverse event [Unknown]
  - Panic attack [Unknown]
  - Asthma [Unknown]
  - Dyspnoea [Unknown]
  - Insomnia [Unknown]
  - Intentional drug misuse [Unknown]
  - Drug dose omission [Unknown]
